FAERS Safety Report 11887164 (Version 4)
Quarter: 2016Q1

REPORT INFORMATION
  Report Type: Report from Study
  Country: IT (occurrence: IT)
  Receive Date: 20160104
  Receipt Date: 20160226
  Transmission Date: 20160526
  Serious: Yes (Hospitalization)
  Sender: FDA-Public Use
  Company Number: IT-APOPHARMA USA, INC.-2015AP015523

PATIENT

DRUGS (7)
  1. CHLORPHENAMINE MALEATE [Concomitant]
     Active Substance: CHLORPHENIRAMINE MALEATE
     Indication: ALLERGIC TRANSFUSION REACTION
     Dosage: 2 MG, QD
     Route: 042
     Dates: start: 20151207, end: 20151207
  2. CETRIZINE [Concomitant]
     Active Substance: CETIRIZINE HYDROCHLORIDE
     Dosage: 5 GTT, BID
     Route: 048
     Dates: start: 20151217, end: 20151217
  3. DEFERIPRONE [Suspect]
     Active Substance: DEFERIPRONE
     Indication: THALASSAEMIA BETA
     Dosage: 368 MG, TID
     Route: 048
     Dates: start: 20150722, end: 20151222
  4. CETRIZINE [Concomitant]
     Active Substance: CETIRIZINE HYDROCHLORIDE
     Dosage: 5 GTT, QD
     Route: 048
     Dates: start: 20151218, end: 20151218
  5. CETRIZINE [Concomitant]
     Active Substance: CETIRIZINE HYDROCHLORIDE
     Indication: PROPHYLAXIS
     Dosage: 5 GTT, QD
     Route: 048
     Dates: start: 20151215, end: 20151216
  6. PARACETAMOL [Concomitant]
     Active Substance: ACETAMINOPHEN
     Indication: PYREXIA
     Dosage: 250 MG, QD
     Route: 054
     Dates: start: 20151222, end: 20151222
  7. DEFERIPRONE [Suspect]
     Active Substance: DEFERIPRONE
     Indication: IRON OVERLOAD

REACTIONS (1)
  - Agranulocytosis [Recovered/Resolved]

NARRATIVE: CASE EVENT DATE: 20151223
